FAERS Safety Report 5008835-1 (Version None)
Quarter: 2006Q2

REPORT INFORMATION
  Report Type: 
  Country: None (occurrence: None)
  Receive Date: 20060518
  Receipt Date: 20060516
  Transmission Date: 20061013
  Serious: Yes (Hospitalization, Disabling)
  Sender: FDA-Public Use
  Company Number: FRWYE824011JUL05

PATIENT
  Age: 57 Year
  Sex: Male

DRUGS (7)
  1. EFFEXOR [Suspect]
     Indication: DEPRESSION
     Dosage: 200 MG 1X PER 1 DAY, ORAL
     Route: 048
     Dates: start: 20030601, end: 20050125
  2. SOLIAN (AMISULPRIDE) [Concomitant]
  3. ATARAX [Concomitant]
  4. XANAX [Concomitant]
  5. ZOCOR [Concomitant]
  6. AOTAL (ACAMPROSATE) [Concomitant]
  7. INEXIUM (ESOMEPRAZOLE) [Concomitant]

REACTIONS (9)
  - DERMATITIS PSORIASIFORM [None]
  - EOSINOPHILIA [None]
  - HYPERKERATOSIS [None]
  - HYPERKERATOSIS PALMARIS AND PLANTARIS [None]
  - PARONYCHIA [None]
  - SKIN EXFOLIATION [None]
  - SKIN FISSURES [None]
  - TONGUE DISORDER [None]
  - WEIGHT DECREASED [None]
